FAERS Safety Report 7930743-4 (Version None)
Quarter: 2011Q4

REPORT INFORMATION
  Report Type: 
  Country: None (occurrence: None)
  Receive Date: 20111117
  Receipt Date: 20111117
  Transmission Date: 20120403
  Serious: Yes (Hospitalization)
  Sender: FDA-Public Use
  Company Number: None

PATIENT
  Sex: Male
  Weight: 79.8331 kg

DRUGS (5)
  1. NEXIUM [Concomitant]
  2. GLYBURIDE AND METFORMIN HYDROCHLORIDE [Concomitant]
  3. TAMSULOSIN HCL [Concomitant]
  4. LAPATINIB [Suspect]
     Indication: TRANSITIONAL CELL CARCINOMA
     Dosage: 1250 MG DAILY PO
     Route: 048
     Dates: start: 20111031, end: 20111106
  5. DIOVAN [Concomitant]

REACTIONS (14)
  - HYPOPHAGIA [None]
  - DEHYDRATION [None]
  - DIZZINESS POSTURAL [None]
  - TACHYCARDIA [None]
  - ATRIAL FIBRILLATION [None]
  - NAUSEA [None]
  - ISCHAEMIA [None]
  - VOMITING [None]
  - DIARRHOEA [None]
  - LEUKOPENIA [None]
  - ILEUS [None]
  - GASTROINTESTINAL INFECTION [None]
  - ENTERITIS INFECTIOUS [None]
  - KLEBSIELLA TEST POSITIVE [None]
